FAERS Safety Report 11238406 (Version 1)
Quarter: 2015Q3

REPORT INFORMATION
  Report Type: Spontaneous
  Country: US (occurrence: US)
  Receive Date: 20150705
  Receipt Date: 20150705
  Transmission Date: 20151125
  Serious: No
  Sender: FDA-Public Use
  Company Number: US-ASTRAZENECA-2015SE55068

PATIENT

DRUGS (12)
  1. REVATIO [Concomitant]
     Active Substance: SILDENAFIL CITRATE
     Route: 048
  2. LEVAQUIN [Concomitant]
     Active Substance: LEVOFLOXACIN
     Dosage: 1 TAB, 21 DAYS
     Route: 048
  3. MUCINEX [Concomitant]
     Active Substance: GUAIFENESIN
  4. MUCINEX [Concomitant]
     Active Substance: GUAIFENESIN
  5. METOPROLOL [Concomitant]
     Active Substance: METOPROLOL
  6. SYMBICORT [Suspect]
     Active Substance: BUDESONIDE\FORMOTEROL FUMARATE DIHYDRATE
     Dosage: UNKNOWN
     Route: 055
  7. ACETYLCYSTEINE. [Concomitant]
     Active Substance: ACETYLCYSTEINE
  8. DIGOXIN. [Concomitant]
     Active Substance: DIGOXIN
  9. ALBUTEROL HFA [Concomitant]
     Active Substance: ALBUTEROL SULFATE
  10. VERAPAMIL [Concomitant]
     Active Substance: VERAPAMIL HYDROCHLORIDE
     Route: 048
  11. XANAX [Concomitant]
     Active Substance: ALPRAZOLAM
     Dosage: 0.25 MG, EVERY 6HOURS PRN
  12. LINZESS [Concomitant]
     Active Substance: LINACLOTIDE
     Dosage: 1 CAP DAILY, PRN

REACTIONS (6)
  - Cough [Unknown]
  - Kyphosis [Unknown]
  - Dyspnoea [Unknown]
  - Hypoxia [Unknown]
  - Drug hypersensitivity [Unknown]
  - Pulmonary hypertension [Unknown]
